FAERS Safety Report 6698776-6 (Version None)
Quarter: 2010Q2

REPORT INFORMATION
  Report Type: 
  Country: None (occurrence: None)
  Receive Date: 20100427
  Receipt Date: 20100416
  Transmission Date: 20101027
  Serious: Yes (Hospitalization)
  Sender: FDA-Public Use
  Company Number: PHHY2010NL24051

PATIENT

DRUGS (1)
  1. ACLASTA [Suspect]
     Dosage: UNK
     Route: 042
     Dates: start: 20100414

REACTIONS (2)
  - ILEUS [None]
  - SURGERY [None]
